FAERS Safety Report 6673416-0 (Version None)
Quarter: 2010Q2

REPORT INFORMATION
  Report Type: 
  Country: None (occurrence: None)
  Receive Date: 20100408
  Receipt Date: 20100327
  Transmission Date: 20101027
  Serious: Yes (Other)
  Sender: FDA-Public Use
  Company Number: CA-PFIZER INC-2010039611

PATIENT

DRUGS (2)
  1. ZELDOX [Suspect]
     Dosage: 60 MG, 2X/DAY
  2. QUETIAPINE [Concomitant]
     Dosage: UNK

REACTIONS (1)
  - ACTIVATION SYNDROME [None]
